FAERS Safety Report 7001609-1 (Version None)
Quarter: 2010Q3

REPORT INFORMATION
  Report Type: 
  Country: None (occurrence: None)
  Receive Date: 20100920
  Receipt Date: 20100909
  Transmission Date: 20110219
  Serious: Yes (Hospitalization)
  Sender: FDA-Public Use
  Company Number: US-JNJFOC-20100903938

PATIENT
  Sex: Female
  Weight: 52.89 kg

DRUGS (12)
  1. REMICADE [Suspect]
     Indication: INFLAMMATORY BOWEL DISEASE
     Route: 042
  2. AMITIZA [Concomitant]
  3. MIDODRINE HYDROCHLORIDE [Concomitant]
  4. FLORINEF [Concomitant]
  5. PERIACTIN [Concomitant]
  6. LAMICTAL [Concomitant]
  7. 5-ASA [Concomitant]
  8. HYDROCORTISONE [Concomitant]
  9. PERCOCET [Concomitant]
  10. PHENERGAN [Concomitant]
  11. SENOKOT [Concomitant]
  12. DULCOLAX [Concomitant]

REACTIONS (1)
  - IRRITABLE BOWEL SYNDROME [None]
